FAERS Safety Report 11822932 (Version 1)
Quarter: 2015Q4

REPORT INFORMATION
  Report Type: Spontaneous
  Country: US (occurrence: US)
  Receive Date: 20151210
  Receipt Date: 20151210
  Transmission Date: 20160305
  Serious: No
  Sender: FDA-Public Use
  Company Number: US-AKRIMAX-NRP-00024

PATIENT
  Sex: Female

DRUGS (1)
  1. NITROGLYCERIN LINGUAL AEROSOL [Suspect]
     Active Substance: NITROGLYCERIN
     Indication: CHEST PAIN
     Dosage: ONE SPRAY AS NEEDED
     Route: 060
     Dates: start: 201411

REACTIONS (2)
  - Drug ineffective [Unknown]
  - Product physical consistency issue [Unknown]
